FAERS Safety Report 7437932-6 (Version None)
Quarter: 2011Q2

REPORT INFORMATION
  Report Type: 
  Country: None (occurrence: None)
  Receive Date: 20110426
  Receipt Date: 20110412
  Transmission Date: 20111010
  Serious: Yes (Other)
  Sender: FDA-Public Use
  Company Number: US-CELGENEUS-163-21880-11021496

PATIENT
  Sex: Male
  Weight: 111.4 kg

DRUGS (6)
  1. REVLIMID [Suspect]
     Indication: MULTIPLE MYELOMA
     Dosage: 25 MILLIGRAM
     Route: 048
     Dates: start: 20110112, end: 20110329
  2. POTASSIUM [Concomitant]
     Dosage: 20 MILLIGRAM
     Route: 065
  3. PHENERGAN HCL [Concomitant]
     Indication: NAUSEA
     Dosage: 25 MILLIGRAM
     Route: 065
  4. LISINOPRIL AND HYDROCHLOROTHIAZIDE [Concomitant]
     Dosage: 20/12.5MG
     Route: 065
  5. PERCOCET [Concomitant]
     Indication: PAIN
     Dosage: 7.5/500MG
     Route: 065
  6. PAXIL [Concomitant]
     Dosage: 20 MILLIGRAM
     Route: 065

REACTIONS (4)
  - GAIT DISTURBANCE [None]
  - SCAPULA FRACTURE [None]
  - SOMNOLENCE [None]
  - FALL [None]
